FAERS Safety Report 19673126 (Version 1)
Quarter: 2021Q3

REPORT INFORMATION
  Report Type: Spontaneous
  Country: US (occurrence: US)
  Receive Date: 20210809
  Receipt Date: 20210809
  Transmission Date: 20211014
  Serious: Yes (Other)
  Sender: FDA-Public Use
  Company Number: US-ACCORD-150434

PATIENT
  Age: 70 Year
  Sex: Female
  Weight: 88.9 kg

DRUGS (42)
  1. PARAPLATIN [Suspect]
     Active Substance: CARBOPLATIN
     Indication: PERITONEAL CARCINOMA METASTATIC
  2. WELLBUTRIN XL [Concomitant]
     Active Substance: BUPROPION HYDROCHLORIDE
     Dates: start: 20130308, end: 20170904
  3. NEULASTA [Concomitant]
     Active Substance: PEGFILGRASTIM
     Dosage: STRENGTH: 6 MG
     Dates: start: 20110811, end: 20111130
  4. BACLOFEN. [Concomitant]
     Active Substance: BACLOFEN
     Dates: start: 20131217, end: 20140421
  5. AZITHROMYCIN ANHYDROUS. [Concomitant]
     Active Substance: AZITHROMYCIN ANHYDROUS
     Dates: start: 20101028, end: 20171101
  6. BACLOFEN. [Concomitant]
     Active Substance: BACLOFEN
     Dosage: STRENGTH: 10 MG
     Dates: start: 20180702, end: 20180806
  7. AMOXICILLIN. [Concomitant]
     Active Substance: AMOXICILLIN
     Dates: start: 20120403, end: 20130815
  8. BREO ELLIPTA [Concomitant]
     Active Substance: FLUTICASONE FUROATE\VILANTEROL TRIFENATATE
     Dates: start: 20171130, end: 20180207
  9. PROBIOTIC [Concomitant]
     Active Substance: PROBIOTICS NOS
     Dates: start: 20130601
  10. DIPHENHYDRAMINE. [Concomitant]
     Active Substance: DIPHENHYDRAMINE
     Dates: start: 20110809, end: 20111129
  11. CARBOPLATIN. [Concomitant]
     Active Substance: CARBOPLATIN
     Dosage: STRENGTH: 50 MG
     Dates: start: 20110810, end: 20111130
  12. OZEMPIC [Concomitant]
     Active Substance: SEMAGLUTIDE
     Dosage: STRENGTH: 0.5 MG
     Dates: start: 20181004
  13. TOLTERODINE [Concomitant]
     Active Substance: TOLTERODINE
     Dosage: STRENGTH: 4 MG
     Dates: start: 20170925, end: 20171206
  14. IBUPROFEN. [Concomitant]
     Active Substance: IBUPROFEN
     Dosage: STRENGTH: 800 MG
     Dates: start: 20110110, end: 20180228
  15. FUROSEMIDE. [Concomitant]
     Active Substance: FUROSEMIDE
     Dosage: STRENGTH: 20 MG
     Dates: start: 20120106, end: 20150520
  16. AUGMENTIN XR [Concomitant]
     Active Substance: AMOXICILLIN\CLAVULANATE POTASSIUM
     Dates: start: 20080328, end: 20171206
  17. DEXAMETHASONE. [Concomitant]
     Active Substance: DEXAMETHASONE
     Dosage: STRENGTH: 1 MG
     Dates: start: 20110809, end: 20111129
  18. PHENTERMINE. [Concomitant]
     Active Substance: PHENTERMINE
     Dosage: STRENGTH: 30 MG
     Dates: start: 20141022, end: 20160907
  19. NEURONTIN [Concomitant]
     Active Substance: GABAPENTIN
     Dates: start: 20110105
  20. JANUVIA [Concomitant]
     Active Substance: SITAGLIPTIN PHOSPHATE
     Dosage: STRENGTH: 100 MG
     Dates: start: 20050501
  21. ZOLOFT [Concomitant]
     Active Substance: SERTRALINE HYDROCHLORIDE
     Dates: start: 19870101
  22. DEXAMETHASONE. [Concomitant]
     Active Substance: DEXAMETHASONE
     Dosage: STRENGTH: 4 MG
     Dates: start: 20100610, end: 20111201
  23. PILOCARPINE. [Concomitant]
     Active Substance: PILOCARPINE
     Dosage: STRENGTH: 5 MG
     Dates: start: 20090201
  24. BUMETANIDE. [Concomitant]
     Active Substance: BUMETANIDE
     Dosage: STRENGTH: 1 MG
     Dates: start: 20180314, end: 20190227
  25. CYCLOBENZAPRINE. [Concomitant]
     Active Substance: CYCLOBENZAPRINE
     Dates: start: 20120403, end: 20180728
  26. PALONOSETRON. [Concomitant]
     Active Substance: PALONOSETRON HYDROCHLORIDE
     Dosage: STRENGTH: 25 MCG
     Dates: start: 20110810, end: 20111130
  27. WELCHOL [Concomitant]
     Active Substance: COLESEVELAM HYDROCHLORIDE
     Dosage: STRENGTH: 3.75 GM
     Dates: start: 20081206
  28. DOXYCYCLINE. [Concomitant]
     Active Substance: DOXYCYCLINE
     Dates: start: 20131202, end: 20150308
  29. KLONOPIN [Concomitant]
     Active Substance: CLONAZEPAM
     Dates: start: 20090414
  30. VANCOMYCIN [Concomitant]
     Active Substance: VANCOMYCIN
     Dosage: STRENGTH: 250 MG
     Dates: start: 20110817, end: 20111010
  31. CYANOCOBALAMIN. [Concomitant]
     Active Substance: CYANOCOBALAMIN
     Dosage: STRENGTH: 1000 MCG./ML
     Dates: start: 20141031
  32. ERGOCALCIFEROL. [Concomitant]
     Active Substance: ERGOCALCIFEROL
     Dosage: STRENGTH: 5000 UNIT
     Dates: start: 20110105
  33. ELIQUIS [Concomitant]
     Active Substance: APIXABAN
     Dosage: STRENGTH: 5 MG
     Dates: start: 20171009
  34. TRAMADOL. [Concomitant]
     Active Substance: TRAMADOL
     Dosage: STRENGTH: 50 MG
     Dates: start: 20170222, end: 20181115
  35. AZASITE [Concomitant]
     Active Substance: AZITHROMYCIN MONOHYDRATE
     Dosage: STRENGTH: 1%
     Dates: start: 20140603, end: 20181212
  36. BENZONATATE. [Concomitant]
     Active Substance: BENZONATATE
     Dates: start: 20110812, end: 20171206
  37. DOCETAXEL ACCORD [Suspect]
     Active Substance: DOCETAXEL
     Indication: PERITONEAL CARCINOMA METASTATIC
     Dosage: EVERY THREE WEEKS
     Dates: start: 20110810, end: 20111130
  38. XANAX [Concomitant]
     Active Substance: ALPRAZOLAM
     Dosage: STRENGTH: 0.5 MG
     Dates: start: 20110513
  39. LYRICA [Concomitant]
     Active Substance: PREGABALIN
     Dosage: STRENGTH: 100 MG
     Dates: start: 20170117, end: 20190131
  40. KLOR?CON [Concomitant]
     Active Substance: POTASSIUM CHLORIDE
     Dosage: STRENGTH: 10 MEQ
     Dates: start: 20120106, end: 20180706
  41. CYANOCOBALAMIN. [Concomitant]
     Active Substance: CYANOCOBALAMIN
     Dosage: STRENGTH: 1000 MCG/ML
     Dates: start: 20141103, end: 20160911
  42. DULCOLAX NOS [Concomitant]
     Active Substance: BISACODYL OR DOCUSATE SODIUM

REACTIONS (1)
  - Alopecia [Not Recovered/Not Resolved]

NARRATIVE: CASE EVENT DATE: 20120530
